FAERS Safety Report 18485107 (Version 1)
Quarter: 2020Q4

REPORT INFORMATION
  Report Type: Spontaneous
  Country: DE (occurrence: DE)
  Receive Date: 20201110
  Receipt Date: 20201110
  Transmission Date: 20210114
  Serious: Yes (Hospitalization, Other)
  Sender: FDA-Public Use
  Company Number: DE-SHILPA MEDICARE LIMITED-SML-DE-2020-00592

PATIENT
  Age: 68 Year
  Sex: Female

DRUGS (9)
  1. NUTRIFLEX OMEGA PLUS [Concomitant]
     Active Substance: AMINO ACIDS\DEXTROSE\ELECTROLYTES NOS\SOYBEAN OIL
     Indication: PRODUCT USED FOR UNKNOWN INDICATION
     Dosage: NK MG, ?BER NACHT
     Route: 065
  2. HYDROMORPHON [Concomitant]
     Active Substance: HYDROMORPHONE
     Indication: PRODUCT USED FOR UNKNOWN INDICATION
     Dosage: 1.3 MG, 6X
     Route: 065
  3. GEMCITABINE, UNKNOWN [Suspect]
     Active Substance: GEMCITABINE
     Indication: PRODUCT USED FOR UNKNOWN INDICATION
     Dosage: NK MG, LETZTE 25072020
     Route: 065
     Dates: end: 20200725
  4. PACLITAXEL. [Suspect]
     Active Substance: PACLITAXEL
     Indication: PRODUCT USED FOR UNKNOWN INDICATION
     Dosage: NK MG, LETZTE 25.07.2020
     Route: 065
     Dates: end: 20200725
  5. LAXOBERAL [Concomitant]
     Active Substance: SODIUM PICOSULFATE
     Indication: PRODUCT USED FOR UNKNOWN INDICATION
     Dosage: 12 GTT, 0-0-1-0
  6. MCP METOCLOPRAMIDE [Concomitant]
     Indication: PRODUCT USED FOR UNKNOWN INDICATION
     Dosage: 10 MG, 1-1-1-0
     Route: 065
  7. PANTOPRAZOL [Concomitant]
     Active Substance: PANTOPRAZOLE SODIUM
     Indication: PRODUCT USED FOR UNKNOWN INDICATION
     Dosage: 40 MG, 1-0-1-0
     Route: 065
  8. HYDROMORPHON [Concomitant]
     Active Substance: HYDROMORPHONE
     Dosage: 2 MG, 1-0-1-0
  9. METAMIZOL [Concomitant]
     Active Substance: METAMIZOLE SODIUM
     Indication: PRODUCT USED FOR UNKNOWN INDICATION
     Dosage: 40 GTT, 1-1-1-1
     Route: 065

REACTIONS (5)
  - Localised infection [Unknown]
  - Pyrexia [Unknown]
  - Oliguria [Unknown]
  - General physical health deterioration [Unknown]
  - Dysuria [Unknown]
